FAERS Safety Report 5619615-8 (Version None)
Quarter: 2008Q1

REPORT INFORMATION
  Report Type: 
  Country: None (occurrence: None)
  Receive Date: 20080205
  Receipt Date: 20080205
  Transmission Date: 20080703
  Serious: Yes (Life-Threatening)
  Sender: FDA-Public Use
  Company Number: None

PATIENT
  Age: 41 Year
  Sex: Male
  Weight: 108.8633 kg

DRUGS (1)
  1. CHANTIX [Suspect]
     Indication: SMOKING CESSATION THERAPY
     Dosage: AS SUGGESTED FOR 2 WEEKS 2 WEEKS PO
     Route: 048
     Dates: start: 20071001, end: 20071014

REACTIONS (8)
  - ANXIETY [None]
  - DEPRESSION [None]
  - FEELING ABNORMAL [None]
  - INSOMNIA [None]
  - MENTAL DISORDER [None]
  - NO THERAPEUTIC RESPONSE [None]
  - PARANOIA [None]
  - PSYCHOTIC DISORDER [None]
